FAERS Safety Report 4664325-7 (Version None)
Quarter: 2005Q2

REPORT INFORMATION
  Report Type: 
  Country: None (occurrence: None)
  Receive Date: 20050518
  Receipt Date: 20041228
  Transmission Date: 20051028
  Serious: Yes (Hospitalization)
  Sender: FDA-Public Use
  Company Number: US-MERCK-0412USA03068

PATIENT
  Age: 60 Year
  Sex: Male
  Weight: 82 kg

DRUGS (5)
  1. VIOXX [Suspect]
     Indication: ARTHRALGIA
     Route: 048
     Dates: start: 20000601
  2. VIOXX [Suspect]
     Route: 048
     Dates: start: 20000729, end: 20040930
  3. VIOXX [Suspect]
     Indication: OSTEOARTHRITIS
     Route: 048
     Dates: start: 20000601
  4. VIOXX [Suspect]
     Route: 048
     Dates: start: 20000729, end: 20040930
  5. INSULIN [Concomitant]
     Route: 065

REACTIONS (14)
  - ANAEMIA [None]
  - ATRIOVENTRICULAR BLOCK FIRST DEGREE [None]
  - CORONARY ARTERY DISEASE [None]
  - DYSPHONIA [None]
  - ERECTILE DYSFUNCTION [None]
  - GASTROOESOPHAGEAL REFLUX DISEASE [None]
  - HYPERTENSION [None]
  - MUSCLE INJURY [None]
  - MUSCLE STRAIN [None]
  - MYOCARDIAL INFARCTION [None]
  - OSTEOARTHRITIS [None]
  - PLANTAR FASCIITIS [None]
  - ROTATOR CUFF SYNDROME [None]
  - TENDONITIS [None]
